FAERS Safety Report 6641060-7 (Version None)
Quarter: 2010Q1

REPORT INFORMATION
  Report Type: 
  Country: None (occurrence: None)
  Receive Date: 20100318
  Receipt Date: 20090721
  Transmission Date: 20100710
  Serious: No
  Sender: FDA-Public Use
  Company Number: US-ASTRAZENECA-2009SE05466

PATIENT
  Age: 62 Year
  Sex: Female
  Weight: 90.7 kg

DRUGS (2)
  1. ZESTRIL [Suspect]
     Route: 048
  2. NORVASC [Concomitant]

REACTIONS (2)
  - LARYNGITIS [None]
  - NASOPHARYNGITIS [None]
